FAERS Safety Report 4286842-4 (Version None)
Quarter: 2004Q1

REPORT INFORMATION
  Report Type: 
  Country: None (occurrence: None)
  Receive Date: 20040206
  Receipt Date: 20040128
  Transmission Date: 20041129
  Serious: Yes (Other)
  Sender: FDA-Public Use
  Company Number: PHEH2004US01339

PATIENT
  Age: 67 Year
  Sex: Female

DRUGS (1)
  1. ZOMETA [Suspect]
     Dates: start: 20011201

REACTIONS (6)
  - BLOOD CREATININE INCREASED [None]
  - OSTEOMYELITIS [None]
  - OSTEONECROSIS [None]
  - PROCEDURAL COMPLICATION [None]
  - SEQUESTRECTOMY [None]
  - SURGERY [None]
